FAERS Safety Report 16583507 (Version 2)
Quarter: 2019Q3

REPORT INFORMATION
  Report Type: Spontaneous
  Country: US (occurrence: US)
  Receive Date: 20190717
  Receipt Date: 20190719
  Transmission Date: 20191004
  Serious: No
  Sender: FDA-Public Use
  Company Number: US-PFIZER INC-2019302861

PATIENT
  Age: 54 Year
  Sex: Male
  Weight: 88.45 kg

DRUGS (2)
  1. GABAPENTIN. [Suspect]
     Active Substance: GABAPENTIN
     Indication: THORACIC OUTLET SYNDROME
     Dosage: 300 MG, AS NEEDED (300MG CAPSULE BY MOUTH 2-3 TIMES DAILY AS NEEDED)
     Route: 048
     Dates: start: 2011
  2. GABAPENTIN. [Suspect]
     Active Substance: GABAPENTIN
     Dosage: 600 MG, AS NEEDED (INCREASED TO 600MG TABLET 2-3 TIMES DAILY AS NEEDED)
     Route: 048

REACTIONS (8)
  - Pain [Not Recovered/Not Resolved]
  - Product use in unapproved indication [Unknown]
  - Muscle spasms [Unknown]
  - Memory impairment [Not Recovered/Not Resolved]
  - Peripheral swelling [Unknown]
  - Dysarthria [Unknown]
  - Peripheral nerve lesion [Unknown]
  - Off label use [Unknown]

NARRATIVE: CASE EVENT DATE: 2017
